FAERS Safety Report 8315189-1 (Version None)
Quarter: 2012Q2

REPORT INFORMATION
  Report Type: 
  Country: None (occurrence: None)
  Receive Date: 20120426
  Receipt Date: 20120420
  Transmission Date: 20120825
  Serious: Yes (Other)
  Sender: FDA-Public Use
  Company Number: JP-GLAXOSMITHKLINE-B0797968A

PATIENT
  Sex: Female
  Weight: 49 kg

DRUGS (12)
  1. CEFAZOLIN SODIUM [Concomitant]
     Indication: PROPHYLAXIS AGAINST DIARRHOEA
     Route: 048
     Dates: start: 20110905, end: 20111110
  2. XELODA [Suspect]
     Route: 048
     Dates: start: 20110905, end: 20120309
  3. TRASTUZUMAB [Concomitant]
     Indication: BREAST CANCER
     Route: 042
     Dates: start: 20120314, end: 20120314
  4. DOCETAXEL [Concomitant]
     Indication: BREAST CANCER
     Route: 042
     Dates: start: 20120314, end: 20120314
  5. MOBIC [Concomitant]
     Indication: OSTEOARTHRITIS
     Route: 048
     Dates: start: 20100330, end: 20120320
  6. MUCOSTA [Concomitant]
     Indication: GASTRITIS
     Route: 048
     Dates: start: 20100330, end: 20120320
  7. TYKERB [Suspect]
     Indication: BREAST CANCER
     Route: 048
     Dates: start: 20110617
  8. URSO 250 [Concomitant]
     Indication: HEPATITIS C
     Route: 048
     Dates: start: 20100330, end: 20120320
  9. TYKERB [Suspect]
     Route: 048
     Dates: start: 20110905, end: 20120309
  10. XELODA [Suspect]
     Route: 048
     Dates: start: 20110617
  11. AMLODIPINE [Concomitant]
     Indication: HYPERTENSION
     Route: 048
     Dates: start: 20100330, end: 20120320
  12. LIMAPROST ALFADEX [Concomitant]
     Indication: SPINAL COLUMN STENOSIS
     Route: 048
     Dates: end: 20120320

REACTIONS (1)
  - ANAEMIA [None]
